FAERS Safety Report 5727297-X (Version None)
Quarter: 2008Q2

REPORT INFORMATION
  Report Type: 
  Country: None (occurrence: None)
  Receive Date: 20080505
  Receipt Date: 20080422
  Transmission Date: 20081010
  Serious: Yes (Other)
  Sender: FDA-Public Use
  Company Number: BE-AMGEN-UK274089

PATIENT
  Sex: Male
  Weight: 61 kg

DRUGS (3)
  1. ARANESP [Suspect]
     Indication: RENAL FAILURE CHRONIC
     Route: 058
     Dates: start: 20070907
  2. PROGRAF [Concomitant]
     Route: 065
  3. CELLCEPT [Concomitant]
     Route: 065

REACTIONS (3)
  - APLASIA PURE RED CELL [None]
  - INFECTION [None]
  - PARVOVIRUS B19 SEROLOGY POSITIVE [None]
